FAERS Safety Report 5758846-3 (Version None)
Quarter: 2008Q2

REPORT INFORMATION
  Report Type: 
  Country: None (occurrence: None)
  Receive Date: 20080603
  Receipt Date: 20080603
  Transmission Date: 20081010
  Serious: Yes (Hospitalization)
  Sender: FDA-Public Use
  Company Number: None

PATIENT
  Age: 60 Year
  Sex: Male

DRUGS (1)
  1. ASPIRIN [Suspect]
     Indication: CEREBROVASCULAR ACCIDENT
     Dosage: 325 MG EVERY DAY PO
     Route: 048
     Dates: start: 20080104, end: 20080104

REACTIONS (6)
  - ANAPHYLACTIC REACTION [None]
  - DIARRHOEA [None]
  - ERYTHEMA [None]
  - PARAESTHESIA [None]
  - RASH PAPULAR [None]
  - UNEVALUABLE EVENT [None]
